FAERS Safety Report 7153579-3 (Version None)
Quarter: 2010Q4

REPORT INFORMATION
  Report Type: 
  Country: None (occurrence: None)
  Receive Date: 20101213
  Receipt Date: 20101203
  Transmission Date: 20110411
  Serious: Yes (Hospitalization)
  Sender: FDA-Public Use
  Company Number: KR-BRISTOL-MYERS SQUIBB COMPANY-15334790

PATIENT
  Age: 66 Year
  Sex: Male

DRUGS (3)
  1. CETUXIMAB [Suspect]
     Indication: GASTROOESOPHAGEAL CANCER
     Dosage: STRENGTH:5MG/ML NO OF INF:1,MOST RECENT INF ON 04OCT2010.
     Route: 042
     Dates: start: 20101004, end: 20101011
  2. CISPLATIN [Suspect]
     Indication: GASTROOESOPHAGEAL CANCER
     Dosage: DAY 1 OF CYCLE,MOST RECENT ON 04OCT2010.
     Route: 042
     Dates: start: 20101004
  3. XELODA [Suspect]
     Indication: GASTROOESOPHAGEAL CANCER
     Dosage: ON DAY 1:15 RECEIVED A DOSE ON 10OCT10 TABS
     Route: 048
     Dates: start: 20101004, end: 20101011

REACTIONS (1)
  - ABDOMINAL ABSCESS [None]
